FAERS Safety Report 13144047 (Version 2)
Quarter: 2017Q1

REPORT INFORMATION
  Report Type: Report from Study
  Country: DE (occurrence: DE)
  Receive Date: 20170124
  Receipt Date: 20170215
  Transmission Date: 20170428
  Serious: Yes (Death, Hospitalization, Other)
  Sender: FDA-Public Use
  Company Number: DE-BRISTOL-MYERS SQUIBB COMPANY-BMS-2017-003550

PATIENT
  Sex: Male
  Weight: 88 kg

DRUGS (1)
  1. NIVOLUMAB [Suspect]
     Active Substance: NIVOLUMAB
     Indication: NON-SMALL CELL LUNG CANCER
     Dosage: 234 MG, UNK
     Route: 065
     Dates: start: 20160823, end: 20161222

REACTIONS (8)
  - Dyspnoea [Not Recovered/Not Resolved]
  - Hypokalaemia [Unknown]
  - Chronic obstructive pulmonary disease [Unknown]
  - Pleural effusion [Not Recovered/Not Resolved]
  - Hyponatraemia [Unknown]
  - Infection [Unknown]
  - Sputum discoloured [Unknown]
  - Malignant neoplasm progression [Fatal]

NARRATIVE: CASE EVENT DATE: 20161223
